FAERS Safety Report 19682026 (Version 1)
Quarter: 2021Q3

REPORT INFORMATION
  Report Type: Spontaneous
  Country: US (occurrence: US)
  Receive Date: 20210810
  Receipt Date: 20210810
  Transmission Date: 20211014
  Serious: No
  Sender: FDA-Public Use
  Company Number: US-BEH-2021134773

PATIENT
  Age: 3 Year
  Sex: Male

DRUGS (1)
  1. HIZENTRA [Suspect]
     Active Substance: HUMAN IMMUNOGLOBULIN G
     Dosage: 2 GRAM/ 10 ML
     Route: 065
     Dates: start: 20210805

REACTIONS (2)
  - Incorrect dose administered [Unknown]
  - Discomfort [Unknown]

NARRATIVE: CASE EVENT DATE: 20210805
